FAERS Safety Report 15037439 (Version 1)
Quarter: 2018Q2

REPORT INFORMATION
  Report Type: Spontaneous
  Country: US (occurrence: US)
  Receive Date: 20180530
  Receipt Date: 20180530
  Transmission Date: 20180711
  Serious: No
  Sender: FDA-Public Use
  Company Number: None

PATIENT
  Age: 30 Year
  Sex: Female
  Weight: 54.43 kg

DRUGS (1)
  1. COPPER-CONTAINING INTRAUTERINE DEVICE (IUD) [Suspect]
     Active Substance: COPPER

REACTIONS (10)
  - Presyncope [None]
  - Speech disorder [None]
  - Procedural pain [None]
  - Procedural haemorrhage [None]
  - Placental disorder [None]
  - Dyspnoea [None]
  - Pregnancy [None]
  - Maternal exposure before pregnancy [None]
  - Blood pressure decreased [None]
  - Asthenia [None]

NARRATIVE: CASE EVENT DATE: 20170430
